FAERS Safety Report 4456811-X (Version None)
Quarter: 2004Q3

REPORT INFORMATION
  Report Type: 
  Country: None (occurrence: None)
  Receive Date: 20040921
  Receipt Date: 20040913
  Transmission Date: 20050211
  Serious: Yes (Hospitalization)
  Sender: FDA-Public Use
  Company Number: 2004064328

PATIENT
  Age: 19 Year
  Sex: Female

DRUGS (3)
  1. CYKLOKAPRON [Suspect]
     Indication: EPISTAXIS
     Dosage: UNSPECIFIED; ORAL
     Route: 048
     Dates: start: 20030417, end: 20030422
  2. DESMOPRESSIN ACETATE (DESMOPRESSIN ACETATE) [Suspect]
     Indication: EPISTAXIS
     Dosage: SPORADICALLY, DOSE UNSPECIFIED
     Dates: start: 20030417
  3. SERETIDE MITE (FLUTICASONE PROPIONATE, SALMETEROL XINAFOATE) [Concomitant]

REACTIONS (4)
  - ABDOMINAL PAIN [None]
  - DIZZINESS [None]
  - NAUSEA [None]
  - VOMITING [None]
